FAERS Safety Report 10193040 (Version 2)
Quarter: 2014Q2

REPORT INFORMATION
  Report Type: Report from Study
  Country: US (occurrence: US)
  Receive Date: 20140524
  Receipt Date: 20140524
  Transmission Date: 20141212
  Serious: Yes (Other)
  Sender: FDA-Public Use
  Company Number: US-ROCHE-1343053

PATIENT
  Age: 62 Year
  Sex: Female
  Weight: 98.97 kg

DRUGS (3)
  1. ERIVEDGE [Suspect]
     Indication: BASAL CELL CARCINOMA
     Route: 048
     Dates: start: 201302, end: 20140418
  2. ADVIL [Concomitant]
     Indication: ARTHRITIS
     Route: 065
  3. HYDROXYZINE [Concomitant]
     Indication: HYPERTENSION
     Route: 048

REACTIONS (2)
  - Squamous cell carcinoma [Recovering/Resolving]
  - Arthritis [Not Recovered/Not Resolved]
